FAERS Safety Report 8563901-9 (Version None)
Quarter: 2012Q3

REPORT INFORMATION
  Report Type: 
  Country: None (occurrence: None)
  Receive Date: 20120727
  Receipt Date: 20120727
  Transmission Date: 20120928
  Serious: Yes (Other)
  Sender: FDA-Public Use
  Company Number: None

PATIENT
  Age: 19 Year
  Sex: Male
  Weight: 97.5234 kg

DRUGS (1)
  1. MINOCYCLINE HCL [Suspect]
     Indication: ACNE
     Dosage: 100 MG 1 PER DAY, PO
     Route: 048
     Dates: start: 20120601, end: 20120715

REACTIONS (6)
  - THINKING ABNORMAL [None]
  - MOOD SWINGS [None]
  - ANXIETY [None]
  - CONFUSIONAL STATE [None]
  - HYPERVIGILANCE [None]
  - DEPRESSION [None]
